FAERS Safety Report 19002856 (Version 1)
Quarter: 2021Q1

REPORT INFORMATION
  Report Type: Spontaneous
  Country: US (occurrence: US)
  Receive Date: 20210312
  Receipt Date: 20210312
  Transmission Date: 20210420
  Serious: Yes (Other)
  Sender: FDA-Public Use
  Company Number: US-SA-2021SA073876

PATIENT

DRUGS (5)
  1. CLONIDINE. [Concomitant]
     Active Substance: CLONIDINE
     Dosage: 75 MG, QID
  2. PLAVIX [Suspect]
     Active Substance: CLOPIDOGREL BISULFATE
     Indication: CEREBROVASCULAR ACCIDENT
     Dosage: UNK
  3. ELIQUIS [Suspect]
     Active Substance: APIXABAN
     Indication: CEREBROVASCULAR ACCIDENT
     Dosage: 5 MG, BID
     Route: 048
  4. ASPIRINE [Concomitant]
     Active Substance: ASPIRIN
  5. BENADRYL [Concomitant]
     Active Substance: DIPHENHYDRAMINE HYDROCHLORIDE

REACTIONS (19)
  - Constipation [Unknown]
  - Contusion [Unknown]
  - Product dose omission issue [Unknown]
  - Cough [Unknown]
  - Fatigue [Unknown]
  - Dyspnoea [Unknown]
  - Arthralgia [Unknown]
  - Insomnia [Unknown]
  - Urticaria [Unknown]
  - Dysphagia [Unknown]
  - Headache [Unknown]
  - Oropharyngeal pain [Unknown]
  - Epistaxis [Unknown]
  - Swollen tongue [Unknown]
  - Pruritus [Unknown]
  - Gingival bleeding [Unknown]
  - Internal haemorrhage [Unknown]
  - Joint swelling [Unknown]
  - Peripheral swelling [Unknown]
